FAERS Safety Report 13350047 (Version 1)
Quarter: 2017Q1

REPORT INFORMATION
  Report Type: Spontaneous
  Country: US (occurrence: US)
  Receive Date: 20170320
  Receipt Date: 20170320
  Transmission Date: 20170429
  Serious: No
  Sender: FDA-Public Use
  Company Number: US-BAYER-2017-052560

PATIENT
  Age: 47 Year
  Sex: Male

DRUGS (4)
  1. CLARISPRAY NASAL ALLERGY [Suspect]
     Active Substance: FLUTICASONE PROPIONATE
     Indication: SNEEZING
  2. CLARITIN [Suspect]
     Active Substance: LORATADINE
     Indication: SEASONAL ALLERGY
     Dosage: UNK
  3. CLARISPRAY NASAL ALLERGY [Suspect]
     Active Substance: FLUTICASONE PROPIONATE
     Indication: SEASONAL ALLERGY
     Dosage: USED THE SPRAY A NUMBER OF TIMES OVER THE PAST COUPLE OF WEEKS (DIDN^T USE IT EVERYDAY)
     Dates: start: 2017
  4. CLARISPRAY NASAL ALLERGY [Suspect]
     Active Substance: FLUTICASONE PROPIONATE
     Indication: RHINORRHOEA

REACTIONS (5)
  - Product use issue [None]
  - Drug effect incomplete [None]
  - Sneezing [None]
  - Drug ineffective [Unknown]
  - Rhinorrhoea [None]

NARRATIVE: CASE EVENT DATE: 2017
